FAERS Safety Report 19018574 (Version 1)
Quarter: 2021Q1

REPORT INFORMATION
  Report Type: Spontaneous
  Country: US (occurrence: US)
  Receive Date: 20210317
  Receipt Date: 20210317
  Transmission Date: 20210420
  Serious: Yes (Hospitalization)
  Sender: FDA-Public Use
  Company Number: US-HIKMA PHARMACEUTICALS USA INC.-US-H14001-21-01171

PATIENT
  Age: 68 Year
  Sex: Female

DRUGS (4)
  1. AMIODARONE [Suspect]
     Active Substance: AMIODARONE
     Indication: ATRIAL FIBRILLATION
     Route: 040
  2. REMDESIVIR. [Suspect]
     Active Substance: REMDESIVIR
     Route: 042
  3. REMDESIVIR. [Suspect]
     Active Substance: REMDESIVIR
     Indication: COVID-19
     Route: 042
  4. AMIODARONE [Suspect]
     Active Substance: AMIODARONE
     Dosage: 450 MG/250 ML WAS STARTED AT 1 MG/MIN FOR SIX HOURS FOLLOWED BY 0.5 MG/MIN.
     Route: 042

REACTIONS (4)
  - Hepatic enzyme increased [Recovered/Resolved]
  - Ammonia increased [Recovered/Resolved]
  - Blood bilirubin increased [Recovered/Resolved]
  - International normalised ratio increased [Recovered/Resolved]
